FAERS Safety Report 11174044 (Version 1)
Quarter: 2015Q2

REPORT INFORMATION
  Report Type: Spontaneous
  Country: GB (occurrence: None)
  Receive Date: 20150605
  Receipt Date: 20150605
  Transmission Date: 20150821
  Serious: Yes (Hospitalization)
  Sender: FDA-Public Use
  Company Number: GB-DEXPHARM-20150344

PATIENT
  Age: 67 Year
  Sex: Male

DRUGS (5)
  1. OMEPRAZOLE. [Suspect]
     Active Substance: OMEPRAZOLE
     Route: 048
  2. TINZAPARIN [Concomitant]
     Active Substance: TINZAPARIN
  3. ASPIRIN. [Concomitant]
     Active Substance: ASPIRIN
  4. CODEINE [Concomitant]
     Active Substance: CODEINE
  5. BENDROFLUMETHIAZIDE [Suspect]
     Active Substance: BENDROFLUMETHIAZIDE

REACTIONS (2)
  - Hyponatraemia [None]
  - Hypokalaemia [None]
